FAERS Safety Report 12223441 (Version 1)
Quarter: 2016Q1

REPORT INFORMATION
  Report Type: Spontaneous
  Country: US (occurrence: US)
  Receive Date: 20160330
  Receipt Date: 20160330
  Transmission Date: 20160526
  Serious: No
  Sender: FDA-Public Use
  Company Number: US-BAYER-2016-060324

PATIENT
  Age: 41 Year
  Sex: Female
  Weight: 72.56 kg

DRUGS (1)
  1. CLARITIN-D 24 HOUR [Suspect]
     Active Substance: LORATADINE\PSEUDOEPHEDRINE SULFATE
     Indication: NASAL CONGESTION
     Dosage: 1 DF, PRN
     Route: 048
     Dates: start: 2013

REACTIONS (2)
  - Dehydration [Recovered/Resolved]
  - Dizziness [Recovered/Resolved]
